FAERS Safety Report 6307859-1 (Version None)
Quarter: 2009Q3

REPORT INFORMATION
  Report Type: 
  Country: None (occurrence: None)
  Receive Date: 20090810
  Receipt Date: 20090730
  Transmission Date: 20100115
  Serious: Yes (Hospitalization)
  Sender: FDA-Public Use
  Company Number: CLOF-1000649

PATIENT
  Age: 71 Year
  Sex: Male

DRUGS (2)
  1. CLOLAR [Suspect]
     Indication: NON-HODGKIN'S LYMPHOMA
     Dosage: 35 MG, QD, INTRAVENOUS, 35 MG, QDX3, INTRAVENOUS
     Route: 042
     Dates: start: 20090619, end: 20090620
  2. CLOLAR [Suspect]
     Indication: NON-HODGKIN'S LYMPHOMA
     Dosage: 35 MG, QD, INTRAVENOUS, 35 MG, QDX3, INTRAVENOUS
     Route: 042
     Dates: start: 20090708, end: 20090710

REACTIONS (9)
  - GASTROINTESTINAL HAEMORRHAGE [None]
  - HAEMOGLOBIN DECREASED [None]
  - HAEMORRHAGE [None]
  - HYPOTENSION [None]
  - INFECTION [None]
  - MOUTH HAEMORRHAGE [None]
  - OCCULT BLOOD POSITIVE [None]
  - TACHYCARDIA [None]
  - THROMBOCYTOPENIA [None]
